FAERS Safety Report 4659068-X (Version None)
Quarter: 2005Q2

REPORT INFORMATION
  Report Type: 
  Country: None (occurrence: None)
  Receive Date: 20050502
  Receipt Date: 20050307
  Transmission Date: 20051028
  Serious: No
  Sender: FDA-Public Use
  Company Number: 200511795US

PATIENT
  Age: 54 Year
  Sex: Male
  Weight: 67.2 kg

DRUGS (2)
  1. KETEK [Suspect]
     Indication: BRONCHITIS
     Dosage: QD
     Dates: start: 20041206, end: 20041206
  2. FLUTICASONE PROPIONATE, SALMETEROL XINAFOATE (ADVAIR) [Concomitant]

REACTIONS (1)
  - RASH GENERALISED [None]
